FAERS Safety Report 18420409 (Version 2)
Quarter: 2020Q4

REPORT INFORMATION
  Report Type: Spontaneous
  Country: PT (occurrence: PT)
  Receive Date: 20201023
  Receipt Date: 20201103
  Transmission Date: 20210114
  Serious: Yes (Other)
  Sender: FDA-Public Use
  Company Number: PT-009507513-2010PRT006815

PATIENT
  Age: 78 Year
  Sex: Male

DRUGS (12)
  1. VELMETIA [Suspect]
     Active Substance: METFORMIN\SITAGLIPTIN
     Indication: DIABETES MELLITUS
     Dosage: 2 TABLETS PER DAY, ONE IN THE MORNING, ONE AT NIGHT, BID
     Route: 048
     Dates: start: 2018
  2. ENALAPRIL MALEATE. [Concomitant]
     Active Substance: ENALAPRIL MALEATE
     Dosage: AT LEAST ONCE A DAY
  3. XADAGO [Concomitant]
     Active Substance: SAFINAMIDE MESYLATE
     Dosage: AT LEAST ONCE A DAY
  4. ZYLORIC [Concomitant]
     Active Substance: ALLOPURINOL
  5. SINEMET CR [Concomitant]
     Active Substance: CARBIDOPA\LEVODOPA
     Dosage: AT LEAST ONCE A DAY
  6. ZOLPIDEM [Concomitant]
     Active Substance: ZOLPIDEM TARTRATE
  7. MADOPAR [Concomitant]
     Active Substance: BENSERAZIDE HYDROCHLORIDE\LEVODOPA
     Dosage: AT LEAST ONCE A DAY
  8. ROPINIROLE. [Concomitant]
     Active Substance: ROPINIROLE
  9. ROSUVASTATIN. [Concomitant]
     Active Substance: ROSUVASTATIN
     Indication: HYPERCHOLESTEROLAEMIA
  10. ESOMEPRAZOLE. [Concomitant]
     Active Substance: ESOMEPRAZOLE MAGNESIUM
  11. CARTIA (ASPIRIN) [Concomitant]
     Active Substance: ASPIRIN
     Dosage: AT LEAST ONCE A DAY
  12. FUROSEMIDE. [Concomitant]
     Active Substance: FUROSEMIDE
     Dosage: AT LEAST ONCE A DAY

REACTIONS (1)
  - Parkinson^s disease [Not Recovered/Not Resolved]

NARRATIVE: CASE EVENT DATE: 2018
